FAERS Safety Report 12010463 (Version 1)
Quarter: 2016Q1

REPORT INFORMATION
  Report Type: Report from Study
  Country: FR (occurrence: FR)
  Receive Date: 20160205
  Receipt Date: 20160205
  Transmission Date: 20160526
  Serious: Yes (Death)
  Sender: FDA-Public Use
  Company Number: FR-PFIZER INC-2015398175

PATIENT
  Age: 60 Year
  Sex: Female

DRUGS (5)
  1. MESNA. [Concomitant]
     Active Substance: MESNA
     Indication: UTERINE LEIOMYOSARCOMA
     Dosage: 3000 MG/M2, CYCLIC (DAY 1 AND 2 EVERY 3 WEEKS)
  2. G-CSF [Concomitant]
     Active Substance: GRANULOCYTE COLONY-STIMULATING FACTOR NOS
     Indication: PROPHYLAXIS
     Dosage: UNK 6 MG GIVEN ONCE OR SUBCUTANEOUS 5 KG/KG PER DAY GIVEN FROM DAY 5
  3. DOXORUBICIN HCL [Suspect]
     Active Substance: DOXORUBICIN HYDROCHLORIDE
     Indication: UTERINE LEIOMYOSARCOMA
     Dosage: 50 MG/M2, CYCLIC (DAY 1 EVERY 3 WEEKS)
  4. CISPLATIN. [Suspect]
     Active Substance: CISPLATIN
     Indication: UTERINE LEIOMYOSARCOMA
     Dosage: 75 MG/M2, CYCLIC (DAY 3 EVERY 3 WEEKS)
  5. IFOSFAMIDE. [Suspect]
     Active Substance: IFOSFAMIDE
     Indication: UTERINE LEIOMYOSARCOMA
     Dosage: 3000 MG/M2, CYCLIC (DAY 1 AND 2 EVERY 3 WEEKS)

REACTIONS (1)
  - Septic shock [Fatal]
